FAERS Safety Report 19256583 (Version 2)
Quarter: 2024Q1

REPORT INFORMATION
  Report Type: Spontaneous
  Country: ES (occurrence: US)
  Receive Date: 20210514
  Receipt Date: 20240326
  Transmission Date: 20240410
  Serious: Yes (Life-Threatening, Other)
  Sender: FDA-Public Use
  Company Number: ES-CELLTRION INC.-2019US028767

PATIENT

DRUGS (40)
  1. RITUXIMAB [Suspect]
     Active Substance: RITUXIMAB
     Indication: Chronic lymphocytic leukaemia
     Dosage: UNK
     Route: 065
     Dates: start: 20131104, end: 20140804
  2. RITUXIMAB [Suspect]
     Active Substance: RITUXIMAB
     Indication: Chronic myeloid leukaemia
     Dosage: UNK
     Route: 065
     Dates: start: 20131104, end: 20140804
  3. RITUXIMAB [Suspect]
     Active Substance: RITUXIMAB
     Dosage: UNK
     Route: 065
     Dates: start: 20131104, end: 20140804
  4. RITUXIMAB [Suspect]
     Active Substance: RITUXIMAB
     Dosage: UNK
     Route: 065
     Dates: start: 201508, end: 201602
  5. RITUXIMAB [Suspect]
     Active Substance: RITUXIMAB
     Dosage: UNK
     Route: 065
     Dates: start: 201508, end: 201602
  6. RITUXIMAB [Suspect]
     Active Substance: RITUXIMAB
     Dosage: UNK
     Route: 065
     Dates: start: 201508, end: 201602
  7. RITUXIMAB [Suspect]
     Active Substance: RITUXIMAB
     Dosage: UNK
     Route: 065
     Dates: start: 201705, end: 20190102
  8. RITUXIMAB [Suspect]
     Active Substance: RITUXIMAB
     Dosage: UNK
     Route: 065
     Dates: start: 201705, end: 20190102
  9. RITUXIMAB [Suspect]
     Active Substance: RITUXIMAB
     Dosage: UNK
     Route: 065
     Dates: start: 201705, end: 20190102
  10. RITUXIMAB [Suspect]
     Active Substance: RITUXIMAB
     Indication: Chronic lymphocytic leukaemia
     Dosage: UNK
     Route: 065
     Dates: start: 201508, end: 201602
  11. RITUXIMAB [Suspect]
     Active Substance: RITUXIMAB
     Indication: Chronic myeloid leukaemia
     Dosage: UNK
     Route: 065
     Dates: start: 201508, end: 201602
  12. RITUXIMAB [Suspect]
     Active Substance: RITUXIMAB
     Dosage: UNK
     Route: 065
     Dates: start: 201508, end: 201602
  13. RITUXIMAB [Suspect]
     Active Substance: RITUXIMAB
     Dosage: UNK (DOSAGE FORM: UNSPECIFIED)
     Route: 065
     Dates: start: 201705, end: 20190102
  14. RITUXIMAB [Suspect]
     Active Substance: RITUXIMAB
     Dosage: UNK (DOSAGE FORM: UNSPECIFIED)
     Route: 065
     Dates: start: 201705, end: 20190102
  15. RITUXIMAB [Suspect]
     Active Substance: RITUXIMAB
     Dosage: UNK (DOSAGE FORM: UNSPECIFIED)
     Route: 065
     Dates: start: 201705, end: 20190102
  16. RITUXIMAB [Suspect]
     Active Substance: RITUXIMAB
     Dosage: UNK (PHARMACEUTICAL DOSE FORM: INJECTION)
     Route: 065
     Dates: start: 20131104, end: 20140804
  17. RITUXIMAB [Suspect]
     Active Substance: RITUXIMAB
     Dosage: UNK (PHARMACEUTICAL DOSE FORM: INJECTION)
     Route: 065
     Dates: start: 20131104, end: 20140804
  18. RITUXIMAB [Suspect]
     Active Substance: RITUXIMAB
     Dosage: UNK (PHARMACEUTICAL DOSE FORM: INJECTION)
     Route: 065
     Dates: start: 20131104, end: 20140804
  19. VENETOCLAX [Suspect]
     Active Substance: VENETOCLAX
     Indication: Chronic lymphocytic leukaemia
     Dosage: 20 MG, QD
     Route: 048
     Dates: start: 20190104, end: 20190107
  20. VENETOCLAX [Suspect]
     Active Substance: VENETOCLAX
     Dosage: 20 MG, QD
     Route: 048
     Dates: start: 20190104, end: 20190107
  21. VENETOCLAX [Suspect]
     Active Substance: VENETOCLAX
     Dosage: UNK
     Route: 048
     Dates: start: 20190205, end: 201903
  22. VENETOCLAX [Suspect]
     Active Substance: VENETOCLAX
     Dosage: UNK
     Route: 048
     Dates: start: 20190205, end: 201903
  23. VENETOCLAX [Suspect]
     Active Substance: VENETOCLAX
     Dosage: UNK (DOSAGE FORM: UNSPECIFIED)
     Route: 048
     Dates: start: 20190205, end: 201903
  24. VENETOCLAX [Suspect]
     Active Substance: VENETOCLAX
     Dosage: UNK (DOSAGE FORM: UNSPECIFIED)
     Route: 048
     Dates: start: 20190225, end: 201903
  25. VENETOCLAX [Suspect]
     Active Substance: VENETOCLAX
     Dosage: UNK
     Route: 048
     Dates: start: 20190225, end: 201903
  26. VENETOCLAX [Suspect]
     Active Substance: VENETOCLAX
     Dosage: UNK
     Route: 048
     Dates: start: 20190225, end: 201903
  27. VENETOCLAX [Suspect]
     Active Substance: VENETOCLAX
     Indication: Chronic lymphocytic leukaemia
     Dosage: 20 MG, QD
     Route: 048
     Dates: start: 20190104, end: 20190107
  28. VENETOCLAX [Suspect]
     Active Substance: VENETOCLAX
     Dosage: 20 MG, QD
     Route: 048
     Dates: start: 20190104, end: 20190107
  29. VENETOCLAX [Suspect]
     Active Substance: VENETOCLAX
     Dosage: 20 MG, QD
     Route: 048
     Dates: start: 20190104, end: 20190107
  30. VENETOCLAX [Suspect]
     Active Substance: VENETOCLAX
     Dosage: 20 MG, QD
     Route: 048
     Dates: start: 20190104, end: 20190107
  31. VENETOCLAX [Suspect]
     Active Substance: VENETOCLAX
     Dosage: 20 MG, QD
     Route: 048
     Dates: start: 20190104, end: 20190107
  32. VENETOCLAX [Suspect]
     Active Substance: VENETOCLAX
     Dosage: 20 MG, QD
     Route: 048
     Dates: start: 20190104, end: 20190107
  33. VENETOCLAX [Suspect]
     Active Substance: VENETOCLAX
     Dosage: 20 MG, QD (DOSAGE FORM: UNSPECIFIED)
     Route: 048
     Dates: start: 20190104, end: 20190107
  34. VENETOCLAX [Suspect]
     Active Substance: VENETOCLAX
     Dosage: 20 MG, QD (DOSAGE FORM: UNSPECIFIED)
     Route: 048
     Dates: start: 20190104, end: 20190107
  35. VENETOCLAX [Suspect]
     Active Substance: VENETOCLAX
     Indication: Chronic lymphocytic leukaemia
     Dosage: 20 MG
     Route: 048
     Dates: start: 20190104, end: 20190107
  36. IBRUTINIB [Suspect]
     Active Substance: IBRUTINIB
     Indication: Chronic lymphocytic leukaemia
     Dosage: UNK
     Route: 048
     Dates: start: 201705, end: 20190102
  37. IMBRUVICA [Suspect]
     Active Substance: IBRUTINIB
     Indication: Chronic lymphocytic leukaemia
     Dosage: UNK
     Route: 048
     Dates: start: 201705, end: 20190102
  38. IMBRUVICA [Suspect]
     Active Substance: IBRUTINIB
     Dosage: UNK
     Route: 048
     Dates: start: 201705, end: 20190102
  39. IMBRUVICA [Suspect]
     Active Substance: IBRUTINIB
     Indication: Chronic lymphocytic leukaemia
     Dosage: UNK
     Route: 048
     Dates: start: 201705, end: 20190102
  40. IMBRUVICA [Suspect]
     Active Substance: IBRUTINIB
     Dosage: UNK
     Route: 048
     Dates: start: 201705

REACTIONS (17)
  - Diarrhoea [Unknown]
  - Neutropenia [Recovered/Resolved]
  - Hepatosplenomegaly [Unknown]
  - Aphasia [Recovered/Resolved]
  - Cholestasis [Unknown]
  - Richter^s syndrome [Unknown]
  - Leukocytosis [Unknown]
  - Chronic lymphocytic leukaemia [Unknown]
  - Streptococcus test positive [Unknown]
  - Tumour lysis syndrome [Unknown]
  - Oedema peripheral [Unknown]
  - Blood lactate dehydrogenase increased [Unknown]
  - Blood lactate dehydrogenase increased [Unknown]
  - Lymphadenopathy [Unknown]
  - Liver disorder [Unknown]
  - Campylobacter gastroenteritis [Unknown]
  - Hyperhidrosis [Unknown]

NARRATIVE: CASE EVENT DATE: 20190101
